FAERS Safety Report 6379593-3 (Version None)
Quarter: 2009Q3

REPORT INFORMATION
  Report Type: 
  Country: None (occurrence: None)
  Receive Date: 20090928
  Receipt Date: 20090918
  Transmission Date: 20100115
  Serious: Yes (Other)
  Sender: FDA-Public Use
  Company Number: US-ASTRAZENECA-2009UW21719

PATIENT
  Age: 21750 Day
  Sex: Male
  Weight: 68.5 kg

DRUGS (8)
  1. CRESTOR [Suspect]
     Indication: HIGH DENSITY LIPOPROTEIN INCREASED
     Route: 048
     Dates: start: 20090706, end: 20090730
  2. CRESTOR [Suspect]
     Indication: BLOOD TRIGLYCERIDES INCREASED
     Route: 048
     Dates: start: 20090706, end: 20090730
  3. PIROXICAM [Concomitant]
  4. LORATADINE [Concomitant]
  5. CHLORPHENIRAMINE MALEATE [Concomitant]
  6. ASPIRIN [Concomitant]
  7. OMEPRAZOLE [Concomitant]
  8. GLIPIZIDE [Concomitant]

REACTIONS (6)
  - BACK PAIN [None]
  - CONSTIPATION [None]
  - DEPRESSION [None]
  - DIARRHOEA [None]
  - MYALGIA [None]
  - RENAL PAIN [None]
